FAERS Safety Report 4304079-7 (Version None)
Quarter: 2004Q1

REPORT INFORMATION
  Report Type: 
  Country: None (occurrence: None)
  Receive Date: 20040224
  Receipt Date: 20040211
  Transmission Date: 20041129
  Serious: Yes (Hospitalization)
  Sender: FDA-Public Use
  Company Number: 04P-150-0250278-00

PATIENT
  Age: 80 Year
  Sex: Male

DRUGS (4)
  1. HUMIRA [Suspect]
     Dosage: 40 MG, SUBCUTANEOUS
     Route: 058
     Dates: start: 20031211, end: 20040109
  2. PREDNISOLONE [Concomitant]
  3. NAPROXEN [Concomitant]
  4. CALCIUM CARBONATE [Concomitant]

REACTIONS (1)
  - ECZEMA INFECTED [None]
